FAERS Safety Report 8990784 (Version 1)
Quarter: 2012Q4

REPORT INFORMATION
  Report Type: Spontaneous
  Country: US (occurrence: None)
  Receive Date: 20121226
  Receipt Date: 20121226
  Transmission Date: 20130627
  Serious: Yes (Other)
  Sender: FDA-Public Use
  Company Number: None

PATIENT
  Sex: Male
  Weight: 96.8 kg

DRUGS (2)
  1. PEGASYS [Suspect]
     Dosage: 180 mcg weekly SQ
     Route: 058
     Dates: start: 201210
  2. RIBAPAK [Suspect]
     Indication: HEPATITIS C
     Dosage: 600 mg twice a day PO
     Route: 048
     Dates: start: 201210

REACTIONS (1)
  - Nephrolithiasis [None]
